FAERS Safety Report 14628474 (Version 1)
Quarter: 2018Q1

REPORT INFORMATION
  Report Type: Spontaneous
  Country: FR (occurrence: FR)
  Receive Date: 20180312
  Receipt Date: 20180312
  Transmission Date: 20180509
  Serious: Yes (Hospitalization, Other)
  Sender: FDA-Public Use
  Company Number: PHHY2017FR201604

PATIENT
  Age: 79 Year
  Sex: Female
  Weight: 45 kg

DRUGS (4)
  1. AMOXICILLIN. [Suspect]
     Active Substance: AMOXICILLIN
     Indication: PNEUMONIA
     Dosage: 2G (1 G, BID)
     Route: 048
     Dates: start: 20161216, end: 20161225
  2. CARBOCISTEINE [Suspect]
     Active Substance: CARBOCYSTEINE
     Indication: COUGH
     Dosage: 10ML(50 ML, BID)
     Route: 048
     Dates: start: 20161216, end: 20161223
  3. PEMBROLIZUMAB. [Suspect]
     Active Substance: PEMBROLIZUMAB
     Indication: MALIGNANT MELANOMA
     Dosage: 2 MG/KG, Q3W
     Route: 042
     Dates: start: 20150606, end: 20170920
  4. PIVALONE [Suspect]
     Active Substance: TIXOCORTOL PIVALATE
     Indication: COUGH
     Dosage: 3 DF, QH (72 DF)
     Route: 045
     Dates: start: 20161216, end: 20161223

REACTIONS (5)
  - Pyrexia [Recovered/Resolved]
  - Conjunctivitis [Recovered/Resolved]
  - Cheilitis [Recovered/Resolved]
  - Colitis [Recovering/Resolving]
  - Rash maculo-papular [Recovered/Resolved with Sequelae]

NARRATIVE: CASE EVENT DATE: 20161225
